FAERS Safety Report 7266172-9 (Version None)
Quarter: 2011Q1

REPORT INFORMATION
  Report Type: 
  Country: None (occurrence: None)
  Receive Date: 20110120
  Receipt Date: 20110107
  Transmission Date: 20110831
  Serious: Yes (Hospitalization)
  Sender: FDA-Public Use
  Company Number: 2010AP002214

PATIENT
  Age: 66 Year
  Sex: Female

DRUGS (7)
  1. CITALOPRAM HYDROBROMIDE [Suspect]
     Indication: DEPRESSION
     Dosage: 20 MG, QD; PO
     Route: 048
     Dates: end: 20100722
  2. CLOZARIL [Suspect]
     Indication: SCHIZOPHRENIA
     Dosage: 400 MG, PO; 400 MG, QD
     Dates: start: 20091002, end: 20101129
  3. CLOZARIL [Suspect]
     Indication: SCHIZOPHRENIA
     Dosage: 400 MG, PO; 400 MG, QD
     Dates: start: 20101203
  4. ISOSORBIDE MONONITRATE [Concomitant]
  5. ZOPICLONE [Concomitant]
  6. SIMVASTATIN [Concomitant]
  7. PROCHLORPERAZINE [Concomitant]

REACTIONS (9)
  - FALL [None]
  - HAEMATEMESIS [None]
  - OESOPHAGEAL ULCER [None]
  - DIZZINESS [None]
  - OESOPHAGITIS [None]
  - GASTROINTESTINAL HAEMORRHAGE [None]
  - LOSS OF CONSCIOUSNESS [None]
  - URINARY TRACT INFECTION [None]
  - GASTROINTESTINAL ULCER [None]
